FAERS Safety Report 24186711 (Version 1)
Quarter: 2024Q3

REPORT INFORMATION
  Report Type: Report from Study
  Country: US (occurrence: US)
  Receive Date: 20240808
  Receipt Date: 20240808
  Transmission Date: 20241017
  Serious: Yes (Hospitalization)
  Sender: NOVITIUM PHARMA
  Company Number: US-NOVITIUMPHARMA-2024USNVP00108

PATIENT
  Sex: Female
  Weight: 22 kg

DRUGS (2)
  1. CARGLUMIC ACID [Suspect]
     Active Substance: CARGLUMIC ACID
     Indication: Methylmalonic acidaemia
     Route: 048
     Dates: start: 20220921
  2. CARGLUMIC ACID [Suspect]
     Active Substance: CARGLUMIC ACID

REACTIONS (2)
  - Off label use [Unknown]
  - Vomiting [Not Recovered/Not Resolved]
